FAERS Safety Report 4441072-8 (Version None)
Quarter: 2004Q3

REPORT INFORMATION
  Report Type: 
  Country: None (occurrence: None)
  Receive Date: 20040902
  Receipt Date: 20040902
  Transmission Date: 20050211
  Serious: Yes (Life-Threatening, Hospitalization)
  Sender: FDA-Public Use
  Company Number: None

PATIENT
  Age: 17 Year
  Sex: Female
  Weight: 65.7716 kg

DRUGS (1)
  1. MOTRIN [Suspect]
     Indication: DYSMENORRHOEA
     Dosage: 800 MG TWICE A DA ORAL
     Route: 048
     Dates: start: 20031210, end: 20040104

REACTIONS (1)
  - STEVENS-JOHNSON SYNDROME [None]
